FAERS Safety Report 9729436 (Version 2)
Quarter: 2013Q4

REPORT INFORMATION
  Report Type: Spontaneous
  Country: US (occurrence: US)
  Receive Date: 20131204
  Receipt Date: 20131204
  Transmission Date: 20140711
  Serious: No
  Sender: FDA-Public Use
  Company Number: US-GILEAD-2009-0021281

PATIENT
  Sex: Female
  Weight: 77.11 kg

DRUGS (16)
  1. LETAIRIS [Suspect]
     Indication: PULMONARY ARTERIAL HYPERTENSION
     Route: 048
     Dates: start: 20070906
  2. ASPIRIN [Concomitant]
     Route: 048
  3. FUROSEMIDE [Concomitant]
     Route: 048
  4. COZAAR [Concomitant]
     Route: 048
  5. TIMOLOL [Concomitant]
  6. ALBUTEROL [Concomitant]
     Route: 055
  7. K-DUR [Concomitant]
     Route: 048
  8. ACCOLATE [Concomitant]
     Route: 048
  9. FLONASE [Concomitant]
     Route: 048
  10. CLONIDINE HCL [Concomitant]
     Route: 048
  11. FORTEO [Concomitant]
  12. VYTORIN [Concomitant]
     Route: 048
  13. ADVAIR [Concomitant]
     Route: 055
  14. FISH OIL [Concomitant]
     Route: 048
  15. CALCIUM [Concomitant]
     Route: 048
  16. MAGNESIUM [Concomitant]
     Route: 048

REACTIONS (1)
  - Dizziness [Unknown]
